FAERS Safety Report 20843192 (Version 1)
Quarter: 2022Q2

REPORT INFORMATION
  Report Type: Spontaneous
  Country: JP (occurrence: JP)
  Receive Date: 20220518
  Receipt Date: 20220518
  Transmission Date: 20220720
  Serious: Yes (Other)
  Sender: FDA-Public Use
  Company Number: JP-ASTELLAS-2022JP005789

PATIENT
  Age: 74 Year
  Sex: Male

DRUGS (1)
  1. PADCEV [Suspect]
     Active Substance: ENFORTUMAB VEDOTIN-EJFV
     Indication: Product used for unknown indication
     Dosage: UNK UNK, CYCLIC, ONCE A WEEK FOR THREE WEEKS IN A ROW FOLLOWED BY ONE WEEK INTERRUPTION
     Route: 041
     Dates: start: 20220107, end: 20220415

REACTIONS (3)
  - Metastasis [Not Recovered/Not Resolved]
  - Malignant neoplasm progression [Not Recovered/Not Resolved]
  - Ocular discomfort [Recovered/Resolved]
